FAERS Safety Report 25345592 (Version 3)
Quarter: 2025Q2

REPORT INFORMATION
  Report Type: Spontaneous
  Country: US (occurrence: US)
  Receive Date: 20250522
  Receipt Date: 20250610
  Transmission Date: 20250716
  Serious: Yes (Other)
  Sender: BRISTOL-MYERS SQUIBB COMPANY
  Company Number: US-BRISTOL-MYERS SQUIBB COMPANY-2025-073587

PATIENT
  Age: 65 Year
  Sex: Female

DRUGS (4)
  1. LENALIDOMIDE [Suspect]
     Active Substance: LENALIDOMIDE
     Indication: Plasma cell myeloma
     Route: 048
  2. LENALIDOMIDE [Suspect]
     Active Substance: LENALIDOMIDE
  3. LENALIDOMIDE [Suspect]
     Active Substance: LENALIDOMIDE
  4. DIPHENHYDRAMINE [Suspect]
     Active Substance: DIPHENHYDRAMINE
     Indication: Product used for unknown indication

REACTIONS (4)
  - Rash [Not Recovered/Not Resolved]
  - Urticaria [Recovering/Resolving]
  - Nausea [Recovering/Resolving]
  - Hallucination [Recovering/Resolving]
